FAERS Safety Report 5566663-2 (Version None)
Quarter: 2007Q4

REPORT INFORMATION
  Report Type: 
  Country: None (occurrence: None)
  Receive Date: 20071217
  Receipt Date: 20071217
  Transmission Date: 20080405
  Serious: Yes (Hospitalization)
  Sender: FDA-Public Use
  Company Number: None

PATIENT
  Sex: Male
  Weight: 52 kg

DRUGS (2)
  1. CIPRO [Suspect]
     Indication: CYSTITIS
     Dosage: 500MG/ 10ML BID PO
     Route: 048
     Dates: start: 20071207, end: 20071211
  2. CIPRO [Suspect]
     Indication: ENTEROBACTER INFECTION
     Dosage: 500MG/ 10ML BID PO
     Route: 048
     Dates: start: 20071207, end: 20071211

REACTIONS (2)
  - HYPOAESTHESIA [None]
  - PARAESTHESIA [None]
